FAERS Safety Report 24560022 (Version 1)
Quarter: 2024Q4

REPORT INFORMATION
  Report Type: Spontaneous
  Country: PH (occurrence: PH)
  Receive Date: 20241029
  Receipt Date: 20241029
  Transmission Date: 20250115
  Serious: Yes (Death, Hospitalization, Congenital Anomaly, Other)
  Sender: STRIDES
  Company Number: PH-STRIDES ARCOLAB LIMITED-2024SP013785

PATIENT
  Sex: Male

DRUGS (4)
  1. PREDNISOLONE [Suspect]
     Active Substance: PREDNISOLONE
     Indication: Product used for unknown indication
     Dosage: UNK
     Route: 064
  2. MYCOPHENOLATE MOFETIL [Suspect]
     Active Substance: MYCOPHENOLATE MOFETIL
     Indication: Product used for unknown indication
     Dosage: UNK
     Route: 064
  3. AZATHIOPRINE [Suspect]
     Active Substance: AZATHIOPRINE
     Indication: Product used for unknown indication
     Dosage: UNK
     Route: 064
  4. HYDROXYCHLOROQUINE [Suspect]
     Active Substance: HYDROXYCHLOROQUINE
     Indication: Product used for unknown indication
     Dosage: UNK
     Route: 064

REACTIONS (7)
  - Haemorrhage intracranial [Fatal]
  - Thrombocytopenia [Fatal]
  - Sepsis [Fatal]
  - Cleft palate [Unknown]
  - Ear malformation [Unknown]
  - Premature baby [Unknown]
  - Foetal exposure during pregnancy [Unknown]
